FAERS Safety Report 4601354-3 (Version None)
Quarter: 2005Q1

REPORT INFORMATION
  Report Type: 
  Country: None (occurrence: None)
  Receive Date: 20050308
  Receipt Date: 20050223
  Transmission Date: 20050727
  Serious: Yes (Other)
  Sender: FDA-Public Use
  Company Number: GBWYE435917FEB05

PATIENT
  Age: 80 Year
  Sex: Female
  Weight: 88.8 kg

DRUGS (5)
  1. ENBREL [Suspect]
     Indication: RHEUMATOID ARTHRITIS
     Route: 058
     Dates: start: 20040519
  2. MADOPAR [Concomitant]
     Indication: PARKINSON'S DISEASE
     Dosage: UNKNOWN
     Route: 048
     Dates: start: 20050101
  3. PREDNISOLONE [Concomitant]
     Indication: ARTHRITIS
     Route: 048
     Dates: start: 19960101
  4. TRAMADOL HCL [Concomitant]
     Indication: ARTHRITIS
     Route: 048
     Dates: start: 19960101
  5. ALENDRONATE SODIUM [Concomitant]
     Route: 048

REACTIONS (2)
  - ALOPECIA [None]
  - PARKINSON'S DISEASE [None]
